FAERS Safety Report 5766668-2 (Version None)
Quarter: 2008Q2

REPORT INFORMATION
  Report Type: 
  Country: None (occurrence: None)
  Receive Date: 20080610
  Receipt Date: 20080610
  Transmission Date: 20081010
  Serious: Yes (Hospitalization)
  Sender: FDA-Public Use
  Company Number: None

PATIENT
  Age: 85 Year
  Sex: Female
  Weight: 77.6 kg

DRUGS (2)
  1. LYRICA [Suspect]
     Indication: HERPES ZOSTER
     Dosage: 50 MG 1-3 TIMES PER DAY PO
     Route: 048
     Dates: start: 20080521, end: 20080601
  2. LYRICA [Suspect]
     Indication: NEUROPATHY PERIPHERAL
     Dosage: 50 MG 1-3 TIMES PER DAY PO
     Route: 048
     Dates: start: 20080521, end: 20080601

REACTIONS (8)
  - ASTHENIA [None]
  - HERPES ZOSTER [None]
  - MOVEMENT DISORDER [None]
  - MYOCLONUS [None]
  - RASH [None]
  - TREMOR [None]
  - URINARY TRACT INFECTION [None]
  - WEIGHT BEARING DIFFICULTY [None]
